FAERS Safety Report 4736503-X (Version None)
Quarter: 2005Q3

REPORT INFORMATION
  Report Type: 
  Country: None (occurrence: None)
  Receive Date: 20050804
  Receipt Date: 20050804
  Transmission Date: 20060218
  Serious: Yes (Hospitalization)
  Sender: FDA-Public Use
  Company Number: None

PATIENT
  Sex: Male

DRUGS (6)
  1. VELCADE [Suspect]
     Dosage: 2.3 MG/M2 ON D1 + D4
     Dates: start: 20050527
  2. VELCADE [Suspect]
     Dosage: 2.3 MG/M2 ON D1 + D4
     Dates: start: 20050531
  3. VELCADE [Suspect]
     Dosage: 2.3 MG/M2 ON D1 + D4
     Dates: start: 20050617
  4. VELCADE [Suspect]
     Dosage: 2.3 MG/M2 ON D1 + D4
     Dates: start: 20050620
  5. VELCADE [Suspect]
     Dosage: 2.3 MG/M2 ON D1 + D4
     Dates: start: 20050708
  6. VELCADE [Suspect]
     Dosage: 2.3 MG/M2 ON D1 + D4
     Dates: start: 20050711

REACTIONS (4)
  - APHTHOUS STOMATITIS [None]
  - NEUTROPHIL COUNT DECREASED [None]
  - ORAL INTAKE REDUCED [None]
  - PYREXIA [None]
